FAERS Safety Report 22354227 (Version 1)
Quarter: 2023Q2

REPORT INFORMATION
  Report Type: Spontaneous
  Country: IT (occurrence: IT)
  Receive Date: 20230523
  Receipt Date: 20230523
  Transmission Date: 20230722
  Serious: Yes (Hospitalization)
  Sender: FDA-Public Use
  Company Number: None

PATIENT
  Age: 61 Year
  Sex: Female

DRUGS (2)
  1. CLONAZEPAM [Suspect]
     Active Substance: CLONAZEPAM
     Indication: Mixed anxiety and depressive disorder
     Dosage: FOR MANY YEARS
     Route: 048
     Dates: start: 20230318, end: 20230318
  2. QUETIAPINE [Concomitant]
     Active Substance: QUETIAPINE
     Indication: Mixed anxiety and depressive disorder
     Dosage: FOR MANY YEARS

REACTIONS (5)
  - Drug abuse [Not Recovered/Not Resolved]
  - Sopor [Not Recovered/Not Resolved]
  - Suicide attempt [Not Recovered/Not Resolved]
  - Toxicity to various agents [Not Recovered/Not Resolved]
  - Hypotension [Not Recovered/Not Resolved]

NARRATIVE: CASE EVENT DATE: 20230318
